FAERS Safety Report 23321216 (Version 1)
Quarter: 2023Q4

REPORT INFORMATION
  Report Type: Report from Study
  Country: CA (occurrence: CA)
  Receive Date: 20231220
  Receipt Date: 20231220
  Transmission Date: 20240109
  Serious: Yes (Other)
  Sender: FDA-Public Use
  Company Number: CA-TAKEDA-2023TUS104644

PATIENT
  Sex: Female

DRUGS (3)
  1. VEDOLIZUMAB [Suspect]
     Active Substance: VEDOLIZUMAB
     Indication: Colitis ulcerative
     Dosage: 300 MILLIGRAM
     Route: 042
     Dates: start: 20230825
  2. Cortiment [Concomitant]
     Dosage: 9 MILLIGRAM
     Dates: start: 20230724
  3. AMLODIPINE [Concomitant]
     Active Substance: AMLODIPINE BESYLATE
     Dosage: 5 MILLIGRAM

REACTIONS (5)
  - Colitis ulcerative [Unknown]
  - Frequent bowel movements [Unknown]
  - Diarrhoea [Unknown]
  - Weight decreased [Unknown]
  - Fatigue [Unknown]
